FAERS Safety Report 22254172 (Version 1)
Quarter: 2023Q2

REPORT INFORMATION
  Report Type: Spontaneous
  Country: US (occurrence: None)
  Receive Date: 20230424
  Receipt Date: 20230424
  Transmission Date: 20230722
  Serious: Yes (Hospitalization)
  Sender: FDA-Public Use
  Company Number: None

PATIENT
  Sex: Male

DRUGS (20)
  1. MYCOPHENOLIC ACID [Suspect]
     Active Substance: MYCOPHENOLIC ACID
     Indication: Renal transplant
     Dosage: FREQUENCY : EVERY 12 HOURS;?
     Route: 048
     Dates: start: 20200618
  2. ACYCLOVIR TAB [Concomitant]
  3. ATORVASTATIN [Concomitant]
     Active Substance: ATORVASTATIN
  4. CALCITRIOL CAP [Concomitant]
  5. FLOMAX CAP [Concomitant]
  6. FLONASE SPR [Concomitant]
  7. HUMALOG KWIK INJ [Concomitant]
  8. IMIPRAM PAM CAP [Concomitant]
  9. LANTUS SOLOS INJ [Concomitant]
  10. LOSARTAN POT TAB [Concomitant]
  11. MAG OXIDE TAB [Concomitant]
  12. METOPROL SUC TAB ER [Concomitant]
  13. MYCOPHENOLAT TAB [Concomitant]
  14. NIFEDIPINE TAB ER [Concomitant]
  15. OMEPRAZOLE TAB [Concomitant]
  16. PREDNISONE [Concomitant]
     Active Substance: PREDNISONE
  17. TACROLIMUS [Concomitant]
     Active Substance: TACROLIMUS
  18. TACROLIMUS [Concomitant]
     Active Substance: TACROLIMUS
  19. TAMSULOSIN [Concomitant]
     Active Substance: TAMSULOSIN
  20. VITAMIN D CAP [Concomitant]

REACTIONS (1)
  - Infection [None]
